FAERS Safety Report 5817654-5 (Version None)
Quarter: 2008Q3

REPORT INFORMATION
  Report Type: 
  Country: None (occurrence: None)
  Receive Date: 20080722
  Receipt Date: 20080715
  Transmission Date: 20090109
  Serious: Yes (Other)
  Sender: FDA-Public Use
  Company Number: TW-SANOFI-SYNTHELABO-A01200808057

PATIENT
  Age: 44 Year
  Sex: Female

DRUGS (3)
  1. FLUOROURACIL [Concomitant]
     Indication: ADENOCARCINOMA
     Dosage: UNK
     Route: 041
  2. FOLINIC ACID [Concomitant]
     Indication: ADENOCARCINOMA
     Dosage: UNK
     Route: 041
  3. OXALIPLATIN [Suspect]
     Indication: ADENOCARCINOMA
     Dosage: UNK
     Route: 041

REACTIONS (1)
  - LONG QT SYNDROME [None]
